FAERS Safety Report 4818385-0 (Version None)
Quarter: 2005Q4

REPORT INFORMATION
  Report Type: 
  Country: None (occurrence: None)
  Receive Date: 20051031
  Receipt Date: 20051017
  Transmission Date: 20060501
  Serious: Yes (Other)
  Sender: FDA-Public Use
  Company Number: HQWYE530919SEP05

PATIENT
  Age: 38 Year
  Sex: Female
  Weight: 52.44 kg

DRUGS (6)
  1. EFFEXOR XR [Suspect]
     Indication: BIPOLAR II DISORDER
     Dosage: 225 MG 1X PER 1 DAY, ORAL
     Route: 048
     Dates: start: 20031101
  2. EFFEXOR XR [Suspect]
     Indication: DEPRESSION
     Dosage: 225 MG 1X PER 1 DAY, ORAL
     Route: 048
     Dates: start: 20031101
  3. LAMICTAL [Suspect]
     Indication: BIPOLAR II DISORDER
     Dosage: 100 MG 1X PER 1 DAY, ORAL
     Route: 048
     Dates: start: 20050112, end: 20050419
  4. SEROQUEL [Concomitant]
  5. SEROQUEL [Concomitant]
  6. KLONOPIN [Concomitant]

REACTIONS (6)
  - ABNORMAL DREAMS [None]
  - DRUG INTERACTION [None]
  - HALLUCINATION [None]
  - MOVEMENT DISORDER [None]
  - NIGHT SWEATS [None]
  - PARASOMNIA [None]
